FAERS Safety Report 8989638 (Version 1)
Quarter: 2012Q4

REPORT INFORMATION
  Report Type: 
  Country: DE (occurrence: DE)
  Receive Date: 20121228
  Receipt Date: 20121228
  Transmission Date: 20130627
  Serious: Yes (Hospitalization, Other)
  Sender: FDA-Public Use
  Company Number: DE-ACCORD-015718

PATIENT
  Age: 34 Year
  Sex: Female

DRUGS (2)
  1. DOCETAXEL [Suspect]
     Indication: INVASIVE DUCTAL BREAST CANCER
     Dosage: two cycles
  2. CYCLOPHOSPHAMIDE [Suspect]
     Indication: INVASIVE DUCTAL BREAST CANCER
     Dosage: four cycles

REACTIONS (5)
  - Pre-eclampsia [Unknown]
  - Exposure during pregnancy [Unknown]
  - Oligohydramnios [Unknown]
  - HELLP syndrome [Unknown]
  - Placental insufficiency [Unknown]
